FAERS Safety Report 9198351 (Version 1)
Quarter: 2013Q1

REPORT INFORMATION
  Report Type: Report from Study
  Country: GB (occurrence: GB)
  Receive Date: 20130329
  Receipt Date: 20130329
  Transmission Date: 20140127
  Serious: Yes (Hospitalization, Disabling)
  Sender: FDA-Public Use
  Company Number: GB-PFIZER INC-2013094178

PATIENT
  Age: 80 Year
  Sex: Female

DRUGS (8)
  1. CELECOXIB [Suspect]
     Indication: OSTEOARTHRITIS
     Dosage: 100 MG, 2X/DAY
     Route: 048
     Dates: start: 20081117, end: 20121124
  2. NAFTIDROFURYL OXALATE [Concomitant]
     Indication: INTERMITTENT CLAUDICATION
     Dosage: 100 MG, 3X/DAY
     Dates: start: 20121029
  3. ACETYLSALICYLIC ACID [Concomitant]
     Dosage: 75 MG, 1X/DAY
  4. CLOPIDOGREL [Concomitant]
     Dosage: 75 MG, 1X/DAY
  5. NICORANDIL [Concomitant]
     Dosage: 10 MG, 2X/DAY
  6. RANITIDINE [Concomitant]
     Dosage: 150 MG, 2X/DAY
  7. MORPHINE SULFATE [Concomitant]
     Dosage: 30 MG, 2X/DAY
  8. BISOPROLOL [Concomitant]
     Dosage: 1 MG, 1X/DAY

REACTIONS (1)
  - Peripheral ischaemia [Recovered/Resolved]
